FAERS Safety Report 11097495 (Version 1)
Quarter: 2015Q2

REPORT INFORMATION
  Report Type: Spontaneous
  Country: US (occurrence: US)
  Receive Date: 20150507
  Receipt Date: 20150507
  Transmission Date: 20150821
  Serious: Yes (Other)
  Sender: FDA-Public Use
  Company Number: US-GLAXOSMITHKLINE-US2015GSK061636

PATIENT
  Age: 9 Month
  Sex: Female

DRUGS (2)
  1. MELPHALAN [Suspect]
     Active Substance: MELPHALAN
     Indication: RETINOBLASTOMA
  2. TOPOTECAN [Suspect]
     Active Substance: TOPOTECAN\TOPOTECAN HYDROCHLORIDE
     Indication: RETINOBLASTOMA

REACTIONS (4)
  - Retinal ischaemia [Recovered/Resolved with Sequelae]
  - Enophthalmos [Recovered/Resolved with Sequelae]
  - Scleritis [Recovered/Resolved with Sequelae]
  - Iris atrophy [Recovered/Resolved with Sequelae]
